FAERS Safety Report 5989239-1 (Version None)
Quarter: 2008Q4

REPORT INFORMATION
  Report Type: 
  Country: None (occurrence: None)
  Receive Date: 20081210
  Receipt Date: 20081202
  Transmission Date: 20090506
  Serious: Yes (Other)
  Sender: FDA-Public Use
  Company Number: US-ELI_LILLY_AND_COMPANY-US200812000930

PATIENT
  Sex: Male
  Weight: 54.422 kg

DRUGS (2)
  1. STRATTERA [Suspect]
     Indication: INSOMNIA
     Dosage: 40 MG, AS NEEDED
     Route: 048
     Dates: start: 20080701, end: 20080701
  2. METHYLPHENIDATE HCL [Concomitant]
     Indication: ATTENTION DEFICIT/HYPERACTIVITY DISORDER
     Dosage: 40 MG, DAILY (1/D)
     Route: 062
     Dates: start: 20071101

REACTIONS (4)
  - DEHYDRATION [None]
  - DIZZINESS [None]
  - HYPOTENSION [None]
  - SYNCOPE [None]
